FAERS Safety Report 11144332 (Version 1)
Quarter: 2015Q2

REPORT INFORMATION
  Report Type: Spontaneous
  Country: US (occurrence: None)
  Receive Date: 20150526
  Receipt Date: 20150526
  Transmission Date: 20150821
  Serious: Yes (Death)
  Sender: FDA-Public Use
  Company Number: US-H14001-15-00765

PATIENT
  Age: 38 Year
  Sex: Male
  Weight: 91.2 kg

DRUGS (10)
  1. DICLOFENAC [Concomitant]
     Active Substance: DICLOFENAC
  2. OMEPRAZOLE. [Concomitant]
     Active Substance: OMEPRAZOLE
  3. DULOXETINE [Concomitant]
     Active Substance: DULOXETINE
  4. NAPROXEN (NAPROXEN) UNKNOWN [Suspect]
     Active Substance: NAPROXEN
     Indication: PRODUCT USED FOR UNKNOWN INDICATION
     Route: 048
  5. PROPRANOLOL [Suspect]
     Active Substance: PROPRANOLOL\PROPRANOLOL HYDROCHLORIDE
     Indication: PRODUCT USED FOR UNKNOWN INDICATION
     Route: 048
  6. VERAPAMIL [Suspect]
     Active Substance: VERAPAMIL HYDROCHLORIDE
     Indication: PRODUCT USED FOR UNKNOWN INDICATION
     Route: 048
  7. DIPHENHYDRAMINE (DIPHENHYDRAMINE) [Suspect]
     Active Substance: DIPHENHYDRAMINE
     Indication: PRODUCT USED FOR UNKNOWN INDICATION
     Route: 048
  8. TADALAFIL [Concomitant]
     Active Substance: TADALAFIL
  9. LORAZEPAM (LORAZEPAM) (UNKNOWN) (LORAZEPAM) [Suspect]
     Active Substance: LORAZEPAM
     Indication: PRODUCT USED FOR UNKNOWN INDICATION
     Route: 048
  10. PREGABALIN. [Concomitant]
     Active Substance: PREGABALIN

REACTIONS (5)
  - Intentional overdose [None]
  - Completed suicide [None]
  - Medication residue present [None]
  - Pulmonary oedema [None]
  - Toxicity to various agents [None]
